FAERS Safety Report 8005094-2 (Version None)
Quarter: 2011Q4

REPORT INFORMATION
  Report Type: 
  Country: None (occurrence: None)
  Receive Date: 20111223
  Receipt Date: 20111212
  Transmission Date: 20120403
  Serious: Yes (Other)
  Sender: FDA-Public Use
  Company Number: PHHY2010JP73141

PATIENT
  Age: 68 Year
  Sex: Male

DRUGS (1)
  1. TASIGNA [Suspect]
     Indication: CHRONIC MYELOID LEUKAEMIA
     Dosage: 600 MG DAILY
     Route: 048
     Dates: start: 20100401

REACTIONS (5)
  - HYPERGLYCAEMIA [None]
  - NEOPLASM MALIGNANT [None]
  - BLOOD GLUCOSE INCREASED [None]
  - BLADDER CANCER [None]
  - URETERIC CANCER [None]
